FAERS Safety Report 11467487 (Version 3)
Quarter: 2015Q4

REPORT INFORMATION
  Report Type: Report from Study
  Country: CA (occurrence: CA)
  Receive Date: 20150908
  Receipt Date: 20151102
  Transmission Date: 20160304
  Serious: Yes (Other)
  Sender: FDA-Public Use
  Company Number: PHHY2014CA012100

PATIENT
  Age: 63 Year
  Sex: Female

DRUGS (4)
  1. SANDOSTATIN LAR DEPOT [Suspect]
     Active Substance: OCTREOTIDE ACETATE
     Indication: MEDULLARY THYROID CANCER
     Dosage: 20 MG, QMO
     Route: 030
     Dates: start: 20140127
  2. SANDOSTATIN LAR DEPOT [Suspect]
     Active Substance: OCTREOTIDE ACETATE
     Dosage: 20 MG, QMO
     Route: 030
     Dates: end: 20150713
  3. SANDOSTATIN LAR DEPOT [Suspect]
     Active Substance: OCTREOTIDE ACETATE
     Dosage: 30 MG, QMO
     Route: 030
  4. COLACE [Concomitant]
     Active Substance: DOCUSATE SODIUM
     Indication: PRODUCT USED FOR UNKNOWN INDICATION
     Dosage: PRN
     Route: 065

REACTIONS (36)
  - Quality of life decreased [Unknown]
  - Back pain [Unknown]
  - Musculoskeletal pain [Unknown]
  - Alopecia [Unknown]
  - Pulmonary mass [Unknown]
  - Lymphadenopathy [Unknown]
  - Fear [Unknown]
  - Choking [Unknown]
  - Chest pain [Unknown]
  - Ageusia [Unknown]
  - Pain [Unknown]
  - Off label use [Unknown]
  - Memory impairment [Unknown]
  - Amnesia [Unknown]
  - Injection site pain [Unknown]
  - Abdominal pain upper [Unknown]
  - Headache [Unknown]
  - Nausea [Unknown]
  - Haematochezia [Unknown]
  - Diarrhoea [Recovered/Resolved]
  - Tearfulness [Unknown]
  - Acne [Unknown]
  - Pollakiuria [Unknown]
  - Gastrointestinal motility disorder [Unknown]
  - Constipation [Unknown]
  - Hypophagia [Unknown]
  - No therapeutic response [Unknown]
  - Food intolerance [Unknown]
  - Dehydration [Unknown]
  - Asthenia [Unknown]
  - Weight decreased [Unknown]
  - Nervousness [Unknown]
  - Neck pain [Unknown]
  - Uterine atony [Unknown]
  - Faeces hard [Unknown]
  - Vomiting [Unknown]

NARRATIVE: CASE EVENT DATE: 2014
